FAERS Safety Report 4598115-0 (Version None)
Quarter: 2005Q1

REPORT INFORMATION
  Report Type: 
  Country: None (occurrence: None)
  Receive Date: 20050304
  Receipt Date: 20041214
  Transmission Date: 20050727
  Serious: Yes (Hospitalization)
  Sender: FDA-Public Use
  Company Number: 200413928JP

PATIENT
  Age: 55 Year
  Sex: Male
  Weight: 56 kg

DRUGS (10)
  1. ARAVA [Suspect]
     Indication: RHEUMATOID ARTHRITIS
     Route: 048
     Dates: start: 20040603, end: 20041111
  2. INDOMETHACIN [Suspect]
     Indication: ANTIINFLAMMATORY THERAPY
     Route: 048
     Dates: end: 20040916
  3. PREDNISOLONE [Suspect]
     Indication: ANTIINFLAMMATORY THERAPY
     Route: 048
     Dates: start: 20020314
  4. ACINON [Concomitant]
     Indication: PROPHYLAXIS
     Route: 048
     Dates: start: 20020314, end: 20040916
  5. ACINON [Concomitant]
     Indication: ULCER
     Route: 048
     Dates: start: 20020314, end: 20040916
  6. AZULFIDINE [Concomitant]
     Route: 048
     Dates: start: 20040908
  7. TAKEPRON [Concomitant]
     Indication: GASTRIC ULCER
     Route: 048
     Dates: start: 20040917
  8. CYTOTEC [Concomitant]
     Indication: GASTRIC ULCER
     Route: 048
     Dates: start: 20040917
  9. PROMAC                                  /JPN/ [Concomitant]
     Indication: GASTRIC ULCER
     Route: 048
     Dates: start: 20040917
  10. FESIN [Concomitant]
     Indication: ANAEMIA
     Route: 048
     Dates: start: 20040916, end: 20040930

REACTIONS (7)
  - BLOOD IRON DECREASED [None]
  - BLOOD UREA INCREASED [None]
  - GASTRIC ULCER [None]
  - GASTROINTESTINAL HAEMORRHAGE [None]
  - HAEMOGLOBIN DECREASED [None]
  - NEUTROPHIL COUNT INCREASED [None]
  - WHITE BLOOD CELL COUNT INCREASED [None]
